FAERS Safety Report 21658378 (Version 1)
Quarter: 2022Q4

REPORT INFORMATION
  Report Type: Spontaneous
  Country: US (occurrence: None)
  Receive Date: 20221128
  Receipt Date: 20221128
  Transmission Date: 20230113
  Serious: No
  Sender: FDA-Public Use
  Company Number: None

PATIENT
  Sex: Female

DRUGS (1)
  1. VERZENIO [Suspect]
     Active Substance: ABEMACICLIB
     Indication: Breast cancer female
     Dosage: TWICE A DAY?
     Route: 048
     Dates: start: 202211

REACTIONS (4)
  - Condition aggravated [None]
  - Dizziness [None]
  - Balance disorder [None]
  - Stomatitis [None]
